FAERS Safety Report 23428175 (Version 1)
Quarter: 2024Q1

REPORT INFORMATION
  Report Type: Spontaneous
  Country: US (occurrence: None)
  Receive Date: 20240122
  Receipt Date: 20240122
  Transmission Date: 20240410
  Serious: Yes (Hospitalization)
  Sender: FDA-Public Use
  Company Number: None

PATIENT
  Sex: Male

DRUGS (2)
  1. ABIRATERONE ACETATE [Suspect]
     Active Substance: ABIRATERONE ACETATE
     Indication: Prostate cancer
     Dosage: 1000MG DAILY ORAL?
     Route: 048
     Dates: start: 202211
  2. METOPROLOL [Concomitant]
     Active Substance: METOPROLOL

REACTIONS (5)
  - Loss of consciousness [None]
  - Loss of consciousness [None]
  - Orthostatic hypertension [None]
  - Therapy cessation [None]
  - Heart rate abnormal [None]
